FAERS Safety Report 19727870 (Version 4)
Quarter: 2021Q3

REPORT INFORMATION
  Report Type: Other
  Country: FR (occurrence: FR)
  Receive Date: 20210820
  Receipt Date: 20210908
  Transmission Date: 20211014
  Serious: Yes (Hospitalization)
  Sender: FDA-Public Use
  Company Number: FR-ROCHE-2892887

PATIENT
  Age: 66 Year
  Sex: Female
  Weight: 78 kg

DRUGS (1)
  1. ALTEPLASE. [Suspect]
     Active Substance: ALTEPLASE
     Indication: SUBARACHNOID HAEMORRHAGE
     Dosage: #1 1 MILLIGRAM EVERY 8 HOUR(S) TOTAL : 9 MG
     Dates: start: 20210726, end: 20210728

REACTIONS (2)
  - Pyrexia [Recovered/Resolved]
  - Confusional state [Recovered/Resolved]

NARRATIVE: CASE EVENT DATE: 20210804
